FAERS Safety Report 21403667 (Version 6)
Quarter: 2022Q4

REPORT INFORMATION
  Report Type: Report from Study
  Country: US (occurrence: US)
  Receive Date: 20221003
  Receipt Date: 20221124
  Transmission Date: 20230113
  Serious: Yes (Hospitalization)
  Sender: FDA-Public Use
  Company Number: US-NOVARTISPH-NVSC2022US218940

PATIENT
  Age: 42 Year
  Sex: Male
  Weight: 123.2 kg

DRUGS (2)
  1. DABRAFENIB [Suspect]
     Active Substance: DABRAFENIB
     Indication: Malignant melanoma
     Dosage: 100 MG, BID
     Route: 048
     Dates: start: 20220531, end: 20220919
  2. TRAMETINIB [Suspect]
     Active Substance: TRAMETINIB
     Indication: Malignant melanoma
     Dosage: 1.5 MG, QD
     Route: 048
     Dates: start: 20220531, end: 20220919

REACTIONS (4)
  - Ventricular arrhythmia [Recovered/Resolved]
  - Dehydration [Recovered/Resolved]
  - Embolism [Not Recovered/Not Resolved]
  - Pelvic abscess [Recovering/Resolving]

NARRATIVE: CASE EVENT DATE: 20220923
